FAERS Safety Report 11898388 (Version 1)
Quarter: 2016Q1

REPORT INFORMATION
  Report Type: Other
  Country: GB (occurrence: GB)
  Receive Date: 20160108
  Receipt Date: 20160108
  Transmission Date: 20160526
  Serious: Yes (Other)
  Sender: FDA-Public Use
  Company Number: GB-MYLANLABS-2015M1034880

PATIENT

DRUGS (11)
  1. PARACETAMOL [Concomitant]
     Active Substance: ACETAMINOPHEN
     Dosage: 2 DF, UNK (TAKE TWO 4 TIMES/DAY AS REQUIRED)
     Dates: start: 20141202
  2. GABAPENTIN. [Concomitant]
     Active Substance: GABAPENTIN
     Dosage: 900 MG, TID
     Dates: start: 20141202
  3. SOLIFENACIN [Concomitant]
     Active Substance: SOLIFENACIN
     Dosage: 10 MG, QD
     Dates: start: 20141202
  4. TIZANIDINE. [Interacting]
     Active Substance: TIZANIDINE
     Dosage: 2 MG, TID
     Dates: start: 20141202
  5. NAPROXEN. [Concomitant]
     Active Substance: NAPROXEN
     Dosage: 500 MG, QD
     Dates: start: 20141202
  6. DIPROBASE                          /01132701/ [Concomitant]
     Dosage: APPLY AS NEEDED
     Route: 061
     Dates: start: 20141205
  7. DOUBLEBASE [Concomitant]
     Active Substance: ISOPROPYL MYRISTATE\PARAFFIN
     Dosage: USE AS NEEDED
     Dates: start: 20150810, end: 20150811
  8. CITALOPRAM [Concomitant]
     Active Substance: CITALOPRAM HYDROBROMIDE
     Dosage: 40 MG, QD
     Dates: start: 20150414
  9. CIPROFLOXACIN. [Suspect]
     Active Substance: CIPROFLOXACIN
     Indication: URINARY TRACT INFECTION
     Dosage: UNK
     Dates: start: 20150928
  10. OMEPRAZOLE. [Concomitant]
     Active Substance: OMEPRAZOLE
     Dosage: 20 MG, QD
     Dates: start: 20141202
  11. TRAMADOL. [Concomitant]
     Active Substance: TRAMADOL
     Dosage: 1 DF, BID
     Dates: start: 20141202

REACTIONS (5)
  - Abdominal tenderness [Recovered/Resolved]
  - Hepatitis [Recovered/Resolved]
  - Chest pain [Recovered/Resolved]
  - Drug interaction [Unknown]
  - Liver function test abnormal [Recovered/Resolved]

NARRATIVE: CASE EVENT DATE: 20150918
